FAERS Safety Report 13184250 (Version 2)
Quarter: 2017Q1

REPORT INFORMATION
  Report Type: Spontaneous
  Country: US (occurrence: US)
  Receive Date: 20170203
  Receipt Date: 20170227
  Transmission Date: 20170428
  Serious: No
  Sender: FDA-Public Use
  Company Number: US-ASTRAZENECA-2017SE08603

PATIENT

DRUGS (1)
  1. BYDUREON [Suspect]
     Active Substance: EXENATIDE
     Dosage: 2 MG, UNKNOWN
     Route: 065

REACTIONS (5)
  - Body temperature decreased [Unknown]
  - Drug dose omission [Unknown]
  - Tremor [Unknown]
  - Body temperature increased [Unknown]
  - Device leakage [Unknown]
